FAERS Safety Report 18935139 (Version 4)
Quarter: 2021Q2

REPORT INFORMATION
  Report Type: Spontaneous
  Country: IL (occurrence: IL)
  Receive Date: 20210224
  Receipt Date: 20210405
  Transmission Date: 20210717
  Serious: Yes (Other)
  Sender: FDA-Public Use
  Company Number: IL-PFIZER INC-2021154973

PATIENT
  Age: 59 Year
  Sex: Female

DRUGS (1)
  1. SOMAVERT [Suspect]
     Active Substance: PEGVISOMANT
     Dosage: 20 MG, DAILY
     Route: 058

REACTIONS (5)
  - Lack of injection site rotation [Unknown]
  - Product dose omission issue [Unknown]
  - Device difficult to use [Unknown]
  - Nephrolithiasis [Unknown]
  - Treatment noncompliance [Unknown]
